FAERS Safety Report 8543663-1 (Version None)
Quarter: 2012Q3

REPORT INFORMATION
  Report Type: 
  Country: None (occurrence: None)
  Receive Date: 20120719
  Receipt Date: 20120719
  Transmission Date: 20120928
  Serious: No
  Sender: FDA-Public Use
  Company Number: None

PATIENT
  Age: 56 Year
  Sex: Male
  Weight: 88.5875 kg

DRUGS (2)
  1. IOPAMIDOL [Suspect]
     Indication: COMPUTERISED TOMOGRAM HEAD
     Dosage: 100ML/300 IODINE CONTRAST ONCE
     Dates: start: 20110125, end: 20110125
  2. IOPAMIDOL [Suspect]
     Indication: BRAIN NEOPLASM
     Dosage: 100ML/300 IODINE CONTRAST ONCE
     Dates: start: 20110125, end: 20110125

REACTIONS (4)
  - CONTRAST MEDIA REACTION [None]
  - SNEEZING [None]
  - FLUSHING [None]
  - PHARYNGEAL OEDEMA [None]
